FAERS Safety Report 9217647 (Version 2)
Quarter: 2013Q4

REPORT INFORMATION
  Report Type: Spontaneous
  Country: US (occurrence: US)
  Receive Date: 20130408
  Receipt Date: 20131219
  Transmission Date: 20140711
  Serious: Yes (Other)
  Sender: FDA-Public Use
  Company Number: US-BAYER-2013-044116

PATIENT
  Age: 50 Year
  Sex: Female

DRUGS (3)
  1. YAZ [Suspect]
     Dosage: UNK
     Route: 048
     Dates: start: 200906, end: 201108
  2. CIPROFLOXACIN [Concomitant]
     Dosage: 500 MG, UNK
  3. VYVANSE [Concomitant]
     Dosage: 50 MG, UNK

REACTIONS (2)
  - Cholecystectomy [None]
  - Cholecystitis infective [None]
